FAERS Safety Report 7217831-5 (Version None)
Quarter: 2011Q1

REPORT INFORMATION
  Report Type: 
  Country: None (occurrence: None)
  Receive Date: 20110110
  Receipt Date: 20110105
  Transmission Date: 20110831
  Serious: Yes (Other)
  Sender: FDA-Public Use
  Company Number: US-ABBOTT-11P-163-0695492-00

PATIENT
  Sex: Female
  Weight: 60.836 kg

DRUGS (4)
  1. HUMIRA [Suspect]
     Indication: CROHN'S DISEASE
     Dates: start: 20101009, end: 20101220
  2. TUMS [Concomitant]
     Indication: VOMITING IN PREGNANCY
     Dosage: 2 PILL
     Route: 048
     Dates: start: 20101109, end: 20101220
  3. PRENATAL VITAMINS [Concomitant]
     Indication: PRODUCT USED FOR UNKNOWN INDICATION
     Dosage: 2 PILL
     Route: 048
     Dates: start: 20101110, end: 20101220
  4. TEA [Concomitant]
     Indication: PRODUCT USED FOR UNKNOWN INDICATION
     Dosage: 1 SERVING
     Route: 048
     Dates: start: 20101009, end: 20101220

REACTIONS (2)
  - ABORTION SPONTANEOUS [None]
  - VOMITING IN PREGNANCY [None]
